FAERS Safety Report 8641851 (Version 2)
Quarter: 2014Q1

REPORT INFORMATION
  Report Type: Spontaneous
  Country: US (occurrence: None)
  Receive Date: 20120323
  Receipt Date: 20130305
  Transmission Date: 20141002
  Serious: Yes (Hospitalization, Disabling, Other)
  Sender: FDA-Public Use
  Company Number: 163-21880-11100847

PATIENT
  Age: 88 Year
  Sex: Male

DRUGS (1)
  1. REVLIMID [Suspect]
     Indication: PLASMA CELL MYELOMA
     Dosage: 10 MG , DAILY X 21 DAYS, PO
     Route: 048
     Dates: start: 200906

REACTIONS (3)
  - Anaemia [None]
  - Dyspnoea [None]
  - Deep vein thrombosis [None]
